FAERS Safety Report 9050609 (Version 2)
Quarter: 2013Q1

REPORT INFORMATION
  Report Type: Spontaneous
  Country: SE (occurrence: SE)
  Receive Date: 20130205
  Receipt Date: 20130225
  Transmission Date: 20140127
  Serious: Yes (Death, Other)
  Sender: FDA-Public Use
  Company Number: SE-NOVOPROD-369701

PATIENT
  Age: 63 Year
  Sex: Male

DRUGS (11)
  1. VICTOZA [Suspect]
     Indication: TYPE 2 DIABETES MELLITUS
     Route: 058
     Dates: start: 20121109
  2. LANTUS [Concomitant]
  3. XENICAL [Concomitant]
     Dosage: 120 MG, UNK
  4. SPIRONOLAKTON [Concomitant]
  5. TROMBYL [Concomitant]
  6. NORVASC [Concomitant]
     Dosage: 10 MG, UNK
  7. SELOKEN                            /00376902/ [Concomitant]
  8. TRYPTIZOL                          /00002202/ [Concomitant]
  9. ATACAND PLUS [Concomitant]
  10. ATORVASTATIN [Concomitant]
  11. METFORMIN [Concomitant]

REACTIONS (1)
  - Sudden death [Fatal]
